FAERS Safety Report 6097816-5 (Version None)
Quarter: 2009Q1

REPORT INFORMATION
  Report Type: 
  Country: None (occurrence: None)
  Receive Date: 20090227
  Receipt Date: 20090216
  Transmission Date: 20090719
  Serious: Yes (Hospitalization, Other)
  Sender: FDA-Public Use
  Company Number: BR-PFIZER INC-2005155941

PATIENT

DRUGS (4)
  1. XALATAN [Suspect]
     Indication: GLAUCOMA
     Route: 047
     Dates: start: 19940101
  2. PURAN T4 [Concomitant]
     Route: 048
     Dates: start: 19940101
  3. LASIX [Concomitant]
     Dosage: UNK
  4. ATENOLOL [Concomitant]
     Dosage: UNK

REACTIONS (11)
  - ANAEMIA [None]
  - BLOOD TRIGLYCERIDES INCREASED [None]
  - BLOOD URIC ACID INCREASED [None]
  - CYST [None]
  - GASTRIC NEOPLASM [None]
  - GASTRIC OPERATION [None]
  - GASTRIC ULCER [None]
  - GOUT [None]
  - HAEMORRHAGE [None]
  - RENAL NEOPLASM [None]
  - WEIGHT DECREASED [None]
